FAERS Safety Report 5035095-8 (Version None)
Quarter: 2006Q2

REPORT INFORMATION
  Report Type: 
  Country: None (occurrence: None)
  Receive Date: 20060622
  Receipt Date: 20060606
  Transmission Date: 20061013
  Serious: Yes (Other)
  Sender: FDA-Public Use
  Company Number: 225784

PATIENT
  Age: 69 Year
  Sex: Female
  Weight: 69 kg

DRUGS (15)
  1. AVASTIN [Suspect]
     Indication: COLON CANCER
     Dosage: 345 MG, Q2W, INTRAVENOUS
     Route: 042
     Dates: start: 20050913, end: 20051130
  2. OXALIPLATIN (OXALIPLATIN) [Suspect]
     Indication: COLON CANCER
     Dosage: 150 MG, Q2W, INTRAVENOUS
     Route: 042
     Dates: start: 20050913, end: 20051130
  3. FLUOROURACIL [Suspect]
     Indication: COLON CANCER
     Dosage: SEE IMAGE
     Route: 040
     Dates: start: 20050913
  4. IRINOTECAN HCL [Suspect]
     Indication: COLORECTAL CANCER
     Dosage: 150 MG, Q2W, INTRAVENOUS
     Route: 042
     Dates: start: 20060201
  5. FOLIC ACID [Suspect]
     Indication: COLORECTAL CANCER
     Dosage: 355 MG, Q2W, INTRAVENOUS
     Route: 042
     Dates: start: 20051113
  6. DEXAMETHASONE [Concomitant]
  7. METOCLOPRAMIDE (METOCLOPRAMIDE HYDROCHLORIDE) [Concomitant]
  8. OMEPRAZOLE [Concomitant]
  9. ENALAPRIL MALEATE [Concomitant]
  10. BISOPROLOL FUMARATE [Concomitant]
  11. HCTZ (HYDROCHLOROTHIAZIDE) [Concomitant]
  12. ROSIGLITAZONE (ROSGLITAZONE MALEATE) [Concomitant]
  13. EMLA (LIDOCAINE, PRILOCAINE HYDROCHLORIDE) [Concomitant]
  14. TAVEGIL (CLEMASTINE FUMARATE) [Concomitant]
  15. KEVATRIL (GRANISETRON HYDROCHLORIDE) [Concomitant]

REACTIONS (5)
  - CONDITION AGGRAVATED [None]
  - DEEP VEIN THROMBOSIS [None]
  - NASOPHARYNGITIS [None]
  - PHLEBITIS [None]
  - SKIN ULCER [None]
